FAERS Safety Report 9580282 (Version 1)
Quarter: 2013Q4

REPORT INFORMATION
  Report Type: Spontaneous
  Country: US (occurrence: None)
  Receive Date: 20131001
  Receipt Date: 20131001
  Transmission Date: 20140711
  Serious: Yes (Hospitalization)
  Sender: FDA-Public Use
  Company Number: None

PATIENT
  Age: 55 None
  Sex: Male
  Weight: 48 kg

DRUGS (1)
  1. SCOPOLAMINE [Suspect]
     Indication: SECRETION DISCHARGE
     Dosage: 0.33 MG UD TOP
     Dates: start: 20130508, end: 20130508

REACTIONS (1)
  - Convulsion [None]
